FAERS Safety Report 23476563 (Version 1)
Quarter: 2024Q1

REPORT INFORMATION
  Report Type: Report from Study
  Country: US (occurrence: US)
  Receive Date: 20240204
  Receipt Date: 20240204
  Transmission Date: 20240410
  Serious: No
  Sender: FDA-Public Use
  Company Number: US-EXELIXIS-CABO-23063551

PATIENT
  Sex: Female
  Weight: 65.125 kg

DRUGS (2)
  1. CABOMETYX [Suspect]
     Active Substance: CABOZANTINIB S-MALATE
     Indication: Renal cancer
     Dosage: 40 MG, QD
     Route: 048
     Dates: start: 20230414, end: 202306
  2. CABOMETYX [Suspect]
     Active Substance: CABOZANTINIB S-MALATE
     Dosage: 20 MG EVERY OTHER DAY ALTERNATING WITH 40 MG EVERY OTHER DAY, QD
     Route: 048
     Dates: start: 202307

REACTIONS (11)
  - Abdominal discomfort [Unknown]
  - Acne [Recovering/Resolving]
  - Erythema [Unknown]
  - Blood cholesterol decreased [Recovering/Resolving]
  - Constipation [Recovered/Resolved]
  - Nausea [Unknown]
  - Stomatitis [Recovered/Resolved]
  - Taste disorder [Unknown]
  - Liver disorder [Unknown]
  - Skin lesion [Unknown]
  - Inappropriate schedule of product administration [Unknown]
